FAERS Safety Report 7197277-9 (Version None)
Quarter: 2010Q4

REPORT INFORMATION
  Report Type: 
  Country: None (occurrence: None)
  Receive Date: 20101226
  Receipt Date: 20101213
  Transmission Date: 20110411
  Serious: Yes (Hospitalization, Other)
  Sender: FDA-Public Use
  Company Number: US-CELGENEUS-163-21880-09070578

PATIENT
  Age: 77 Year
  Sex: Male
  Weight: 82.7 kg

DRUGS (11)
  1. REVLIMID [Suspect]
     Indication: MULTIPLE MYELOMA
     Route: 048
     Dates: start: 20090622, end: 20090705
  2. RAD001 (EVEROLIMUS) [Suspect]
     Indication: MULTIPLE MYELOMA
     Route: 048
     Dates: start: 20090622, end: 20090706
  3. ASPIRIN [Concomitant]
     Route: 065
  4. ASPIRIN [Concomitant]
     Route: 065
  5. CIPRO [Concomitant]
     Route: 065
  6. NEURONTIN [Concomitant]
     Route: 065
  7. LEVOTHYROXINE [Concomitant]
     Route: 065
  8. POTASSIUM CHLORIDE [Concomitant]
     Indication: SUPPLEMENTATION THERAPY
     Route: 065
  9. RBC TRANSFUSION [Concomitant]
     Dosage: 2 UNITS
     Route: 051
     Dates: start: 20090708
  10. EPOETIN ALFA [Concomitant]
     Route: 065
     Dates: start: 20090706
  11. WHOLE BLOOD [Concomitant]
     Dosage: 2 UNITS
     Route: 051
     Dates: start: 20090710, end: 20090710

REACTIONS (2)
  - FEBRILE NEUTROPENIA [None]
  - HYPONATRAEMIA [None]
